FAERS Safety Report 12045267 (Version 2)
Quarter: 2016Q1

REPORT INFORMATION
  Report Type: Spontaneous
  Country: US (occurrence: US)
  Receive Date: 20160208
  Receipt Date: 20160215
  Transmission Date: 20160526
  Serious: Yes (Hospitalization)
  Sender: FDA-Public Use
  Company Number: US-HORIZON-RAV-0019-2016

PATIENT
  Age: 4 Year
  Sex: Female

DRUGS (2)
  1. RAVICTI [Suspect]
     Active Substance: GLYCEROL PHENYLBUTYRATE
     Indication: ARGININOSUCCINATE LYASE DEFICIENCY
     Dosage: 5 ML TID
     Route: 048
     Dates: start: 20160122
  2. BENZOID [Concomitant]
     Indication: ARGININOSUCCINATE LYASE DEFICIENCY

REACTIONS (4)
  - Viral infection [Recovered/Resolved]
  - Ammonia increased [Recovered/Resolved]
  - Asthenia [Recovered/Resolved]
  - Abnormal behaviour [Recovered/Resolved]

NARRATIVE: CASE EVENT DATE: 20160127
